FAERS Safety Report 8076580-4 (Version None)
Quarter: 2012Q1

REPORT INFORMATION
  Report Type: 
  Country: None (occurrence: None)
  Receive Date: 20120127
  Receipt Date: 20111129
  Transmission Date: 20120608
  Serious: Yes (Hospitalization)
  Sender: FDA-Public Use
  Company Number: CA-JNJFOC-20120109253

PATIENT
  Sex: Male
  Weight: 90.9 kg

DRUGS (7)
  1. REMICADE [Suspect]
     Dosage: 3RD INFUSION
     Route: 042
     Dates: start: 20110826
  2. PREDNISONE TAB [Concomitant]
     Route: 065
  3. REMICADE [Suspect]
     Indication: CROHN'S DISEASE
     Dosage: 2ND INFUSION
     Route: 042
     Dates: start: 20110806
  4. REMICADE [Suspect]
     Dosage: 4TH INFUSION
     Route: 042
     Dates: start: 20111103
  5. CALCIUM [Concomitant]
     Route: 065
  6. TYLENOL W/ CODEINE NO. 3 [Concomitant]
     Indication: PAIN
     Route: 065
  7. REMICADE [Suspect]
     Dosage: 1ST INFUSION
     Route: 042
     Dates: start: 20110701

REACTIONS (5)
  - RECTAL ABSCESS [None]
  - ARTHRALGIA [None]
  - MOBILITY DECREASED [None]
  - JOINT STIFFNESS [None]
  - CROHN'S DISEASE [None]
